FAERS Safety Report 16394713 (Version 1)
Quarter: 2019Q3

REPORT INFORMATION
  Report Type: Spontaneous
  Country: US (occurrence: US)
  Receive Date: 20190604
  Receipt Date: 20190604
  Transmission Date: 20191004
  Serious: Yes (Disabling)
  Sender: FDA-Public Use
  Company Number: None

PATIENT
  Sex: Female
  Weight: 74.25 kg

DRUGS (12)
  1. VITAMIN D ONCE WEEKLY [Concomitant]
  2. QUETIAPINE ER 150 MG [Concomitant]
  3. LORAZEPAM 1 MG AS NEEDED (RARELY TAKE) [Concomitant]
  4. XYREM [Suspect]
     Active Substance: SODIUM OXYBATE
     Indication: NARCOLEPSY
     Route: 048
     Dates: start: 20190315
  5. XYREM [Suspect]
     Active Substance: SODIUM OXYBATE
     Indication: NARCOLEPSY
     Route: 048
     Dates: start: 20190315
  6. XYREM [Concomitant]
     Active Substance: SODIUM OXYBATE
  7. OMEPRAZOLE 20 MG [Concomitant]
     Active Substance: OMEPRAZOLE
  8. BUPROPION XL 150 MG [Concomitant]
     Active Substance: BUPROPION
  9. LITHIUM CARBONATE ER 300 MG [Concomitant]
     Active Substance: LITHIUM CARBONATE
  10. DEXAMPHETAMINE SALT 5 MG AS NEEDED (RARELY TAKE) [Concomitant]
  11. ARMODAFINIL. [Concomitant]
     Active Substance: ARMODAFINIL
  12. LEVOTHYROXINE 0.025 MCG [Concomitant]

REACTIONS (3)
  - Abnormal dreams [None]
  - Product quality issue [None]
  - Therapeutic product effect incomplete [None]
